FAERS Safety Report 19924485 (Version 11)
Quarter: 2022Q1

REPORT INFORMATION
  Report Type: Report from Study
  Country: US (occurrence: US)
  Receive Date: 20211006
  Receipt Date: 20220302
  Transmission Date: 20220423
  Serious: Yes (Hospitalization, Other)
  Sender: FDA-Public Use
  Company Number: NVSC2021US219032

PATIENT
  Age: 44 Year
  Sex: Male
  Weight: 54.1 kg

DRUGS (16)
  1. ADAKVEO [Suspect]
     Active Substance: CRIZANLIZUMAB-TMCA
     Indication: Chronic kidney disease
     Dosage: 63.116 MG, OTHER
     Route: 042
     Dates: start: 20210923, end: 20210923
  2. ADAKVEO [Suspect]
     Active Substance: CRIZANLIZUMAB-TMCA
     Indication: Sickle cell nephropathy
  3. ZOFRAN [Concomitant]
     Active Substance: ONDANSETRON HYDROCHLORIDE
     Indication: Vomiting
     Dosage: UNK
     Route: 065
     Dates: start: 20210923, end: 20210927
  4. BENADRYL [Concomitant]
     Active Substance: DIPHENHYDRAMINE HYDROCHLORIDE
     Indication: Prophylaxis
     Dosage: UNK
     Route: 065
     Dates: start: 20210923, end: 20210923
  5. DOLOPHINE [Concomitant]
     Active Substance: METHADONE HYDROCHLORIDE
     Indication: Pain
     Dosage: UNK
     Route: 065
     Dates: start: 20210923, end: 20211001
  6. NORCO [Concomitant]
     Active Substance: ACETAMINOPHEN\HYDROCODONE BITARTRATE
     Indication: Pain
     Dosage: 10-325 MG PER TABLET
     Route: 065
     Dates: start: 20210923, end: 20211001
  7. DILAUDID [Concomitant]
     Active Substance: HYDROMORPHONE HYDROCHLORIDE
     Indication: Pain
     Dosage: 12 MG
     Route: 065
     Dates: start: 20210923, end: 20210924
  8. DILAUDID [Concomitant]
     Active Substance: HYDROMORPHONE HYDROCHLORIDE
     Indication: Pain
  9. MORPHINE [Concomitant]
     Active Substance: MORPHINE
     Indication: Pain
     Dosage: UNK
     Route: 065
     Dates: start: 20210923, end: 20210923
  10. NUBAIN [Concomitant]
     Active Substance: NALBUPHINE HYDROCHLORIDE
     Indication: Pain
     Dosage: UNK
     Route: 065
     Dates: start: 20210923, end: 20210923
  11. LIDODERM [Concomitant]
     Active Substance: LIDOCAINE
     Indication: Pain
     Dosage: 1 PATCH
     Route: 065
     Dates: start: 20210923, end: 20210924
  12. COLACE [Concomitant]
     Active Substance: DOCUSATE SODIUM
     Indication: Constipation
     Dosage: UNK
     Route: 065
     Dates: start: 20210923, end: 20210923
  13. MELATONIN [Concomitant]
     Active Substance: MELATONIN
     Indication: Drug therapy
     Dosage: 3 MG, PRN
     Route: 065
     Dates: start: 20210923, end: 20210923
  14. FOLIC ACID [Concomitant]
     Active Substance: FOLIC ACID
     Indication: Chronic kidney disease
     Dosage: 1 MG
     Route: 065
     Dates: start: 20150529
  15. FOLIC ACID [Concomitant]
     Active Substance: FOLIC ACID
     Indication: Sickle cell nephropathy
  16. HYDROXYUREA [Concomitant]
     Active Substance: HYDROXYUREA
     Indication: Product used for unknown indication
     Dosage: 500 MG, QD
     Route: 065

REACTIONS (1)
  - Sickle cell anaemia with crisis [Recovered/Resolved]

NARRATIVE: CASE EVENT DATE: 20210923
